FAERS Safety Report 6091372-3 (Version None)
Quarter: 2009Q1

REPORT INFORMATION
  Report Type: 
  Country: None (occurrence: None)
  Receive Date: 20090225
  Receipt Date: 20081029
  Transmission Date: 20090719
  Serious: No
  Sender: FDA-Public Use
  Company Number: A0754066A

PATIENT
  Age: 45 Year
  Sex: Female

DRUGS (3)
  1. VERAMYST [Suspect]
     Dosage: 27.5MCG PER DAY
     Route: 045
     Dates: start: 20080601, end: 20081001
  2. ASTELIN [Concomitant]
  3. SALINE SPRAY [Concomitant]

REACTIONS (2)
  - DYSMENORRHOEA [None]
  - MENORRHAGIA [None]
